FAERS Safety Report 6828081-6 (Version None)
Quarter: 2010Q3

REPORT INFORMATION
  Report Type: 
  Country: None (occurrence: None)
  Receive Date: 20100709
  Receipt Date: 20070130
  Transmission Date: 20110219
  Serious: No
  Sender: FDA-Public Use
  Company Number: US-PFIZER INC-2007009345

PATIENT
  Sex: Female
  Weight: 65.77 kg

DRUGS (4)
  1. CHANTIX [Suspect]
     Indication: SMOKING CESSATION THERAPY
     Dates: start: 20070101, end: 20070128
  2. MARIJUANA [Interacting]
     Indication: ATTENTION DEFICIT/HYPERACTIVITY DISORDER
  3. MUSCLE RELAXANTS [Concomitant]
     Indication: JOINT SPRAIN
  4. VALIUM [Concomitant]

REACTIONS (6)
  - ATTENTION DEFICIT/HYPERACTIVITY DISORDER [None]
  - DIARRHOEA [None]
  - DIZZINESS [None]
  - DRUG INTERACTION [None]
  - HEADACHE [None]
  - MUSCLE SPASMS [None]
